FAERS Safety Report 8381307-2 (Version None)
Quarter: 2012Q2

REPORT INFORMATION
  Report Type: 
  Country: None (occurrence: None)
  Receive Date: 20120523
  Receipt Date: 20120511
  Transmission Date: 20120825
  Serious: Yes (Hospitalization)
  Sender: FDA-Public Use
  Company Number: CH-FRI-1000030637

PATIENT
  Sex: Female

DRUGS (8)
  1. CITALOPRAM HYDROBROMIDE [Suspect]
     Dosage: 20 MG
     Route: 048
     Dates: start: 20111229
  2. LITHIUM CARBONATE [Suspect]
     Dosage: 1320 MG
     Route: 048
     Dates: start: 20040606
  3. CLOZAPINE [Suspect]
     Dosage: 500 MG
     Route: 048
     Dates: start: 20040612, end: 20040724
  4. CLOZAPINE [Suspect]
     Dosage: 300 MG
     Route: 048
     Dates: start: 19980101, end: 20040611
  5. AMITRIPTYLINE HCL [Suspect]
     Dosage: 100 MG
     Route: 048
     Dates: start: 20040101, end: 20111229
  6. RISPERDAL [Suspect]
     Dosage: 2 MG
     Route: 048
     Dates: start: 20111220, end: 20111222
  7. CLOZAPINE [Suspect]
     Dosage: 300 MG
     Route: 048
     Dates: end: 20111222
  8. RISPERDAL [Suspect]
     Dosage: 3 MG
     Route: 048
     Dates: start: 20111223, end: 20120117

REACTIONS (1)
  - PARKINSONISM [None]
